FAERS Safety Report 4317664-3 (Version None)
Quarter: 2004Q1

REPORT INFORMATION
  Report Type: 
  Country: None (occurrence: None)
  Receive Date: 20040315
  Receipt Date: 20040225
  Transmission Date: 20041129
  Serious: Yes (Hospitalization)
  Sender: FDA-Public Use
  Company Number: WAES 0402USA01889

PATIENT
  Sex: Female

DRUGS (2)
  1. FOSAMAX [Suspect]
     Indication: OSTEOPOROSIS
     Route: 048
     Dates: start: 20030101, end: 20030101
  2. FOSAMAX [Suspect]
     Route: 048
     Dates: start: 20031101, end: 20040101

REACTIONS (3)
  - DYSPNOEA [None]
  - FULL BLOOD COUNT DECREASED [None]
  - MEDICATION ERROR [None]
